FAERS Safety Report 20630172 (Version 2)
Quarter: 2022Q2

REPORT INFORMATION
  Report Type: Spontaneous
  Country: IL (occurrence: IL)
  Receive Date: 20220324
  Receipt Date: 20220407
  Transmission Date: 20220721
  Serious: Yes (Other)
  Sender: FDA-Public Use
  Company Number: IL-BIOGEN-2022BI01107915

PATIENT

DRUGS (1)
  1. TYSABRI [Suspect]
     Active Substance: NATALIZUMAB
     Indication: Maternal exposure timing unspecified
     Route: 064
     Dates: end: 20220103

REACTIONS (2)
  - Foetal heart rate abnormal [Unknown]
  - Foetal exposure during pregnancy [Recovered/Resolved]
